FAERS Safety Report 24719402 (Version 1)
Quarter: 2024Q4

REPORT INFORMATION
  Report Type: Spontaneous
  Country: ES (occurrence: ES)
  Receive Date: 20241211
  Receipt Date: 20241211
  Transmission Date: 20250115
  Serious: Yes (Hospitalization)
  Sender: ROCHE
  Company Number: ES-002147023-NVSC2024ES232360

PATIENT
  Age: 40 Year
  Sex: Female

DRUGS (1)
  1. OMALIZUMAB [Suspect]
     Active Substance: OMALIZUMAB
     Indication: Food allergy
     Dosage: 150 MG, Q4W
     Route: 050
     Dates: start: 201911

REACTIONS (5)
  - Anaphylactic reaction [Unknown]
  - Urticaria [Unknown]
  - Bronchospasm [Unknown]
  - Hypotension [Unknown]
  - Off label use [Unknown]

NARRATIVE: CASE EVENT DATE: 20191101
